FAERS Safety Report 14659055 (Version 1)
Quarter: 2018Q1

REPORT INFORMATION
  Report Type: Spontaneous
  Country: US (occurrence: US)
  Receive Date: 20180320
  Receipt Date: 20180320
  Transmission Date: 20180509
  Serious: No
  Sender: FDA-Public Use
  Company Number: US-AKRON, INC.-2044122

PATIENT
  Sex: Female

DRUGS (1)
  1. LORAZEPAM ORAL CONCENTRATE [Suspect]
     Active Substance: LORAZEPAM
     Route: 048

REACTIONS (1)
  - Vomiting [Unknown]
